FAERS Safety Report 6048710-7 (Version None)
Quarter: 2009Q1

REPORT INFORMATION
  Report Type: 
  Country: None (occurrence: None)
  Receive Date: 20090123
  Receipt Date: 20090112
  Transmission Date: 20090719
  Serious: Yes (Other)
  Sender: FDA-Public Use
  Company Number: GB-ROCHE-607444

PATIENT
  Age: 30 Year
  Sex: Female

DRUGS (2)
  1. MYCOPHENOLATE MOFETIL [Suspect]
     Dosage: MANUFACTURER UNKNOWN
     Route: 065
  2. CYCLOPHOSPHAMIDE [Concomitant]
     Route: 042

REACTIONS (1)
  - BLOOD IMMUNOGLOBULIN M DECREASED [None]
